FAERS Safety Report 7234586-9 (Version None)
Quarter: 2011Q1

REPORT INFORMATION
  Report Type: 
  Country: None (occurrence: None)
  Receive Date: 20110120
  Receipt Date: 20110112
  Transmission Date: 20110831
  Serious: Yes (Hospitalization, Other)
  Sender: FDA-Public Use
  Company Number: AU-BIOGENIDEC-2010BI032653

PATIENT
  Age: 54 Year
  Sex: Female
  Weight: 53 kg

DRUGS (5)
  1. NATALIZUMAB [Suspect]
     Route: 042
     Dates: start: 20081217, end: 20081217
  2. NATALIZUMAB [Suspect]
     Route: 042
     Dates: start: 20090123, end: 20100105
  3. NATALIZUMAB [Suspect]
     Indication: MULTIPLE SCLEROSIS
     Route: 042
     Dates: start: 20061221, end: 20080704
  4. ZESTRIL [Concomitant]
     Indication: HYPERTENSION
     Route: 048
     Dates: start: 19910101
  5. FOSAMAX [Concomitant]
     Indication: BACK PAIN
     Dates: start: 20071113

REACTIONS (1)
  - SALIVARY GLAND CANCER [None]
